FAERS Safety Report 8912938 (Version 1)
Quarter: 2012Q4

REPORT INFORMATION
  Report Type: 
  Country: IT (occurrence: IT)
  Receive Date: 20121116
  Receipt Date: 20121116
  Transmission Date: 20130627
  Serious: Yes (Hospitalization)
  Sender: FDA-Public Use
  Company Number: IT-GLAXOSMITHKLINE-B0845291A

PATIENT
  Age: 30 Year
  Sex: Male

DRUGS (3)
  1. WELLVONE [Suspect]
     Indication: PNEUMOCYSTIS JIROVECI PNEUMONIA
     Dosage: 10ML per day
     Route: 048
     Dates: start: 20121017, end: 20121026
  2. FLUCONAZOLE [Concomitant]
     Indication: PRODUCT USED FOR UNKNOWN INDICATION
     Route: 042
     Dates: start: 20121004, end: 20121023
  3. PIPERACILLIN/TAZOBACTAM [Concomitant]
     Indication: PRODUCT USED FOR UNKNOWN INDICATION
     Route: 042
     Dates: start: 20121004, end: 20121023

REACTIONS (3)
  - Neutropenia [Recovering/Resolving]
  - Transaminases increased [Recovering/Resolving]
  - Blood lactate dehydrogenase increased [Recovering/Resolving]
